FAERS Safety Report 4546483-8 (Version None)
Quarter: 2005Q1

REPORT INFORMATION
  Report Type: 
  Country: None (occurrence: None)
  Receive Date: 20050103
  Receipt Date: 20041220
  Transmission Date: 20050727
  Serious: Yes (Hospitalization, Other)
  Sender: FDA-Public Use
  Company Number: 2004118690

PATIENT
  Sex: Male
  Weight: 108.8633 kg

DRUGS (13)
  1. CELEBREX [Suspect]
     Indication: ARTHRITIS
     Dosage: AS NECESSARY
     Dates: start: 19960101, end: 19991001
  2. BEXTRA [Suspect]
     Indication: ILL-DEFINED DISORDER
  3. DIMETICONE, ACTIVATED (SIMETICONE) [Suspect]
     Indication: ABDOMINAL DISTENSION
  4. DIMETICONE, ACTIVATED (SIMETICONE) [Suspect]
     Indication: INSOMNIA
  5. DIMETICONE, ACTIVATED (SIMETICONE) [Suspect]
     Indication: STOMACH DISCOMFORT
  6. FAMOTIDINE [Suspect]
     Indication: ABDOMINAL DISTENSION
  7. FAMOTIDINE [Suspect]
     Indication: INSOMNIA
  8. FAMOTIDINE [Suspect]
     Indication: STOMACH DISCOMFORT
  9. CLONIDINE [Concomitant]
  10. SIMVASTATIN [Concomitant]
  11. ALL OTHER THERAPEUTIC PRODUCTS (ALL OTHER THERAPEUTIC PRODUCTS) [Concomitant]
  12. ALLOPURINOL [Concomitant]
  13. COLCHICINE (COLCHICINE) [Concomitant]

REACTIONS (8)
  - ABDOMINAL DISTENSION [None]
  - BLOOD PRESSURE INCREASED [None]
  - CEREBROVASCULAR ACCIDENT [None]
  - DRUG INEFFECTIVE [None]
  - INSOMNIA [None]
  - NERVE INJURY [None]
  - STOMACH DISCOMFORT [None]
  - TREATMENT NONCOMPLIANCE [None]
